FAERS Safety Report 8449366-6 (Version None)
Quarter: 2012Q2

REPORT INFORMATION
  Report Type: 
  Country: None (occurrence: None)
  Receive Date: 20120619
  Receipt Date: 20120612
  Transmission Date: 20120825
  Serious: Yes (Hospitalization, Other)
  Sender: FDA-Public Use
  Company Number: CA-ROCHE-1048223

PATIENT
  Sex: Male

DRUGS (1)
  1. XOLAIR [Suspect]
     Indication: ASTHMA
     Route: 058
     Dates: start: 20120112

REACTIONS (10)
  - FALL [None]
  - HYPOTHERMIA [None]
  - SYNCOPE [None]
  - ASTHENIA [None]
  - HEADACHE [None]
  - FATIGUE [None]
  - BLOOD PRESSURE INCREASED [None]
  - CONTUSION [None]
  - HYPOTENSION [None]
  - CONCUSSION [None]
